FAERS Safety Report 15977196 (Version 1)
Quarter: 2019Q1

REPORT INFORMATION
  Report Type: Spontaneous
  Country: IN (occurrence: IN)
  Receive Date: 20190218
  Receipt Date: 20190218
  Transmission Date: 20190418
  Serious: Yes (Other)
  Sender: FDA-Public Use
  Company Number: PHHY2019IN032225

PATIENT
  Age: 45 Year
  Sex: Male

DRUGS (5)
  1. PROPRANOLOL [Suspect]
     Active Substance: PROPRANOLOL HYDROCHLORIDE
     Indication: BASEDOW^S DISEASE
     Dosage: 40 MG, BID
     Route: 065
  2. CARBIMAZOLE [Suspect]
     Active Substance: CARBIMAZOLE
     Indication: BASEDOW^S DISEASE
     Dosage: 10 MG, TID
     Route: 065
  3. PREDNISONE. [Suspect]
     Active Substance: PREDNISONE
     Indication: IMMUNOSUPPRESSANT DRUG THERAPY
     Dosage: 20 MG, QD
     Route: 065
  4. CARBIMAZOLE [Suspect]
     Active Substance: CARBIMAZOLE
     Dosage: 5 MG, TID
     Route: 065
  5. CARBIMAZOLE [Suspect]
     Active Substance: CARBIMAZOLE
     Dosage: 10 MG, TID
     Route: 065

REACTIONS (8)
  - Dysphagia [Unknown]
  - Concomitant disease aggravated [Recovering/Resolving]
  - Muscular weakness [Unknown]
  - Eyelid ptosis [Unknown]
  - Myasthenia gravis crisis [Recovering/Resolving]
  - Dysphonia [Unknown]
  - Palatal disorder [Unknown]
  - Myasthenia gravis [Recovering/Resolving]
